FAERS Safety Report 6163045-X (Version None)
Quarter: 2009Q2

REPORT INFORMATION
  Report Type: 
  Country: None (occurrence: None)
  Receive Date: 20090422
  Receipt Date: 20090421
  Transmission Date: 20091009
  Serious: Yes (Other)
  Sender: FDA-Public Use
  Company Number: US-SP-2008-04012

PATIENT
  Age: 50 Year
  Sex: Female

DRUGS (5)
  1. TUBERSOL [Suspect]
     Indication: TUBERCULIN TEST
     Route: 023
     Dates: start: 20081212
  2. TUBERSOL [Suspect]
     Route: 023
     Dates: start: 20081212
  3. ESTROGENIC SUBSTANCE [Concomitant]
  4. VITAMINS [Concomitant]
  5. ASPIRIN [Concomitant]

REACTIONS (9)
  - AXILLARY PAIN [None]
  - CHILLS [None]
  - HYPOAESTHESIA [None]
  - LOCAL SWELLING [None]
  - LYMPHADENOPATHY [None]
  - PARAESTHESIA [None]
  - RASH PRURITIC [None]
  - VASODILATATION [None]
  - VISION BLURRED [None]
